FAERS Safety Report 9188669 (Version 2)
Quarter: 2013Q2

REPORT INFORMATION
  Report Type: Report from Study
  Country: JP (occurrence: JP)
  Receive Date: 20130325
  Receipt Date: 20130402
  Transmission Date: 20140414
  Serious: Yes (Hospitalization, Other)
  Sender: FDA-Public Use
  Company Number: JP-AMGEN-JPNCT2013019732

PATIENT
  Age: 58 Year
  Sex: Female

DRUGS (43)
  1. ETANERCEPT [Suspect]
     Indication: RHEUMATOID ARTHRITIS
     Dosage: 25 MG, 2 TIMES/WK
     Route: 058
     Dates: start: 20051126, end: 20090213
  2. ETANERCEPT [Suspect]
     Dosage: DOSAGE UNCERTAIN
     Route: 058
     Dates: start: 20090318, end: 20100216
  3. ETANERCEPT [Suspect]
     Dosage: 50 MG, WEEKLY
     Route: 058
     Dates: start: 201004
  4. ETANERCEPT [Suspect]
     Dosage: 25 MG, WEEKLY
     Route: 058
     Dates: start: 20100604, end: 20110216
  5. ETANERCEPT [Suspect]
     Dosage: 25 MG, QWK
     Route: 058
     Dates: start: 20110217, end: 20110614
  6. ETANERCEPT [Suspect]
     Dosage: 25 MG, 2 TIMES/WK
     Route: 058
     Dates: start: 20110217, end: 20110614
  7. RHEUMATREX                         /00113801/ [Concomitant]
     Indication: RHEUMATOID ARTHRITIS
     Dosage: 8 MG, WEEKLY
     Route: 048
     Dates: start: 200406
  8. RHEUMATREX                         /00113801/ [Concomitant]
     Dosage: 13 MG, WEEKLY
     Route: 048
     Dates: start: 20090217
  9. RHEUMATREX                         /00113801/ [Concomitant]
     Dosage: 8 MG, WEEKLY
     Route: 048
  10. RHEUMATREX                         /00113801/ [Concomitant]
     Dosage: 10 MG, WEEKLY
     Route: 048
     Dates: start: 201004
  11. RHEUMATREX                         /00113801/ [Concomitant]
     Dosage: 10 MG, WEEKLY
     Route: 048
     Dates: start: 20110217, end: 20110519
  12. RHEUMATREX                         /00113801/ [Concomitant]
     Dosage: 10 MG, WEEKLY
     Route: 048
     Dates: start: 20110520
  13. PREDNISOLONE [Concomitant]
     Indication: RHEUMATOID ARTHRITIS
     Dosage: 5 MG, 1X/DAY
     Route: 048
  14. PREDNISOLONE [Concomitant]
     Dosage: 4 MG, 1X/DAY
     Route: 048
     Dates: end: 20090223
  15. PREDNISOLONE [Concomitant]
     Dosage: 10 MG, 1X/DAY
     Route: 048
     Dates: start: 20090224
  16. PREDNISOLONE [Concomitant]
     Dosage: 4 MG (4 MG,1 IN 1 D)
     Route: 048
     Dates: start: 201004
  17. PREDNISOLONE [Concomitant]
     Dosage: 5 MG, 1X/DAY
     Route: 048
     Dates: start: 20110216, end: 20110217
  18. PREDNISOLONE [Concomitant]
     Dosage: 11 MG, 1X/DAY
     Route: 048
  19. PREDNISOLONE [Concomitant]
     Dosage: 11 MG, (15 MG,1 IN 1 D)
     Route: 042
     Dates: start: 20110711, end: 20110719
  20. PREDNISOLONE [Concomitant]
     Dosage: (12.5 MG, 2 IN 1 D)
     Route: 042
     Dates: start: 20110720, end: 201107
  21. PREDNISOLONE [Concomitant]
     Dosage: 14 MG, 2X/DAY
     Route: 042
     Dates: start: 201107, end: 201107
  22. PREDNISOLONE [Concomitant]
     Dosage: 13 MG, 2X/DAY
     Route: 042
     Dates: start: 20110728, end: 20110804
  23. PREDNISOLONE [Concomitant]
     Dosage: 12 MG, 2X/DAY
     Route: 042
     Dates: start: 20110805, end: 20110811
  24. PREDNISOLONE [Concomitant]
     Dosage: 12 MG, 2X/DAY
     Route: 042
     Dates: start: 20110812
  25. PREDNISOLONE [Concomitant]
     Dosage: 11 MG (15 MG,1 IN 1 D)
     Route: 042
     Dates: start: 20110711, end: 20110719
  26. PREDONINE                          /00016201/ [Concomitant]
     Indication: RHEUMATOID ARTHRITIS
     Dosage: 5 MG (10 MG,1 IN 1 D)
     Route: 042
     Dates: start: 20110628, end: 20110628
  27. PREDONINE                          /00016201/ [Concomitant]
     Dosage: 4 MG (10 MG,1 IN 1 D)
     Route: 042
     Dates: start: 20110629, end: 20110710
  28. ACTEMRA [Concomitant]
     Indication: RHEUMATOID ARTHRITIS
     Dosage: 380 MG, 1IN 4 WK
     Route: 041
     Dates: start: 20090217, end: 20090217
  29. PARIET [Concomitant]
     Indication: PROPHYLAXIS
     Dosage: 10 MG, 1X/DAY
     Route: 048
  30. PARIET [Concomitant]
     Dosage: 10 MG, 1X/DAY
     Route: 048
     Dates: start: 20110217, end: 20120216
  31. MYSLEE [Concomitant]
     Indication: INSOMNIA
     Dosage: 5 MG, 1X/DAY
     Route: 048
  32. MYSLEE [Concomitant]
     Dosage: 10 MG, 1X/DAY
     Route: 048
     Dates: start: 20110217, end: 20120216
  33. MYSLEE [Concomitant]
     Dosage: 5 MG, 1X/DAY
     Route: 048
  34. FOLIAMIN [Concomitant]
     Indication: PROPHYLAXIS
     Dosage: 5 MG, 1X/DAY
     Route: 048
  35. FOLIAMIN [Concomitant]
     Dosage: 10 MG, 1X/DAY
     Route: 048
     Dates: start: 20110217, end: 20120216
  36. BONALEN                            /01220302/ [Concomitant]
     Indication: PROPHYLAXIS
     Dosage: 35 MG, WEEKLY
     Route: 048
  37. BONALEN                            /01220302/ [Concomitant]
     Dosage: 35 MG, WEEKLY
     Route: 048
     Dates: start: 20110217, end: 20120216
  38. PRIMPERAN [Concomitant]
     Indication: PROPHYLAXIS
     Dosage: 10 MG, 1X/DAY
     Route: 048
  39. PRIMPERAN [Concomitant]
     Dosage: 5 MG, 1X/DAY
     Route: 048
     Dates: start: 20110217, end: 20120216
  40. ISONIAZID [Concomitant]
     Indication: TUBERCULIN TEST POSITIVE
     Dosage: DOSAGE IS UNCERTAIN
     Route: 048
     Dates: start: 200407, end: 200504
  41. ALFAROL [Concomitant]
     Dosage: 0.25 UNIT NOT REPORTED (0.25 UNIT NOT REPORTED,1 IN 1 D)
     Route: 048
     Dates: start: 20110217, end: 20120216
  42. ALFAROL [Concomitant]
     Dosage: 0.5 UNIT NOT REPORTED (0.25 UNIT NOT REPORTED,2 IN 1 D)
     Route: 048
  43. EURODIN                            /00401202/ [Concomitant]
     Indication: INSOMNIA
     Dosage: 1 MG, 1X/DAY
     Route: 048

REACTIONS (12)
  - Pancreatitis acute [Unknown]
  - Pleurisy [Unknown]
  - Pneumonia pneumococcal [Recovering/Resolving]
  - Pneumonia [Recovering/Resolving]
  - Cardiac failure congestive [Unknown]
  - Septic shock [Unknown]
  - Gait disturbance [Unknown]
  - Phlebitis [Unknown]
  - Cholelithiasis [Unknown]
  - Sciatica [Unknown]
  - Compression fracture [Unknown]
  - Gastrointestinal disorder [Unknown]
